FAERS Safety Report 24701168 (Version 1)
Quarter: 2024Q4

REPORT INFORMATION
  Report Type: Spontaneous
  Country: US (occurrence: None)
  Receive Date: 20241204
  Receipt Date: 20241204
  Transmission Date: 20250115
  Serious: No
  Sender: Public
  Company Number: None

PATIENT
  Age: 72 Year
  Sex: Male
  Weight: 80.6 kg

DRUGS (1)
  1. CARVYKTI [Suspect]
     Active Substance: CILTACABTAGENE AUTOLEUCEL
     Indication: Plasma cell myeloma
     Dosage: 1 DF DOSAGE FORM ONCE INTRAVENOUS
     Route: 042
     Dates: start: 20241001

REACTIONS (2)
  - Febrile neutropenia [None]
  - Cytokine release syndrome [None]

NARRATIVE: CASE EVENT DATE: 20241010
